FAERS Safety Report 8926017 (Version 3)
Quarter: 2014Q1

REPORT INFORMATION
  Report Type: Spontaneous
  Country: US (occurrence: US)
  Receive Date: 20121126
  Receipt Date: 20140102
  Transmission Date: 20141002
  Serious: Yes (Hospitalization, Other)
  Sender: FDA-Public Use
  Company Number: US-BAYER-2012-121838

PATIENT
  Age: 34 Year
  Sex: Female

DRUGS (6)
  1. YAZ [Suspect]
     Indication: CONTRACEPTION
     Dosage: UNK
     Dates: start: 1997, end: 2011
  2. YASMIN [Suspect]
     Indication: CONTRACEPTION
     Dosage: UNK
     Dates: start: 1997, end: 2011
  3. OCELLA [Suspect]
     Indication: CONTRACEPTION
     Dosage: UNK
     Dates: start: 1997, end: 2011
  4. MORPHINE [Concomitant]
  5. XANAX [Concomitant]
  6. CYMBALTA [Concomitant]

REACTIONS (7)
  - Cholecystectomy [None]
  - Cholecystitis acute [None]
  - Psychological trauma [None]
  - Injury [None]
  - Pain [None]
  - Anxiety [None]
  - Emotional distress [None]
